FAERS Safety Report 8258813-4 (Version None)
Quarter: 2012Q2

REPORT INFORMATION
  Report Type: 
  Country: None (occurrence: None)
  Receive Date: 20120404
  Receipt Date: 20120326
  Transmission Date: 20120825
  Serious: Yes (Hospitalization)
  Sender: FDA-Public Use
  Company Number: JP-SANOFI-AVENTIS-2012SA009423

PATIENT
  Age: 72 Year
  Sex: Male
  Weight: 60 kg

DRUGS (5)
  1. DEXAMETHASONE SODIUM PHOSPHATE [Concomitant]
     Indication: PREMEDICATION
  2. GRANISETRON [Concomitant]
     Indication: PREMEDICATION
  3. CISPLATIN [Concomitant]
     Dosage: DAILY DOSE: 30 MG/BODY
     Dates: start: 20120111, end: 20120118
  4. TAXOTERE [Suspect]
     Indication: HYPOPHARYNGEAL CANCER
     Route: 065
     Dates: start: 20120111, end: 20120118
  5. THERAPEUTIC RADIOPHARMACEUTICALS [Concomitant]
     Dosage: DOSE: 70 GT; SITE: HEAD
     Dates: start: 20120104

REACTIONS (5)
  - HEPATITIS ACUTE [None]
  - SPLENOMEGALY [None]
  - JAUNDICE [None]
  - PRURITUS [None]
  - HEPATOMEGALY [None]
